FAERS Safety Report 7974923-0 (Version None)
Quarter: 2011Q4

REPORT INFORMATION
  Report Type: 
  Country: None (occurrence: None)
  Receive Date: 20111213
  Receipt Date: 20111129
  Transmission Date: 20120403
  Serious: No
  Sender: FDA-Public Use
  Company Number: US-AMGEN-USASP2011053776

PATIENT
  Age: 41 Year
  Sex: Female
  Weight: 81.633 kg

DRUGS (4)
  1. PLAQUENIL [Concomitant]
     Dosage: 20 MG, QD
     Route: 048
     Dates: start: 20110803
  2. FOLIC ACID [Concomitant]
     Dosage: 1 MG, QD
     Route: 048
     Dates: start: 20110602
  3. ARAVA [Concomitant]
     Dosage: 200 MG, 2 TABLETS
     Route: 048
     Dates: start: 20110819
  4. ENBREL [Suspect]
     Indication: RHEUMATOID ARTHRITIS
     Dosage: 50 MG, QWK
     Route: 058
     Dates: start: 20110922, end: 20111018

REACTIONS (5)
  - INJECTION SITE RASH [None]
  - INJECTION SITE INDURATION [None]
  - INJECTION SITE WARMTH [None]
  - INJECTION SITE PRURITUS [None]
  - INJECTION SITE ERYTHEMA [None]
